FAERS Safety Report 21152047 (Version 1)
Quarter: 2022Q3

REPORT INFORMATION
  Report Type: Spontaneous
  Country: US (occurrence: US)
  Receive Date: 20220730
  Receipt Date: 20220730
  Transmission Date: 20221026
  Serious: No
  Sender: FDA-Public Use
  Company Number: US-SA-SAC20220720000963

PATIENT
  Sex: Male

DRUGS (2)
  1. DUPIXENT [Suspect]
     Active Substance: DUPILUMAB
     Indication: Dermatitis atopic
     Dosage: 600 MG, 1X
     Route: 058
     Dates: start: 20220602, end: 20220602
  2. LISINOPRIL [Concomitant]
     Active Substance: LISINOPRIL
     Dosage: 40MG

REACTIONS (3)
  - Blister [Unknown]
  - Pruritus [Unknown]
  - Dermatitis atopic [Unknown]
